FAERS Safety Report 4835851-2 (Version None)
Quarter: 2005Q4

REPORT INFORMATION
  Report Type: 
  Country: None (occurrence: None)
  Receive Date: 20051118
  Receipt Date: 20051108
  Transmission Date: 20060501
  Serious: Yes (Other)
  Sender: FDA-Public Use
  Company Number: 2005154304

PATIENT

DRUGS (2)
  1. NEURONTIN [Suspect]
     Indication: ILL-DEFINED DISORDER
  2. LYRICA [Suspect]
     Indication: ILL-DEFINED DISORDER
     Dosage: 150 (2 IN 1 D)

REACTIONS (1)
  - CONVULSION [None]
